FAERS Safety Report 20706251 (Version 3)
Quarter: 2023Q2

REPORT INFORMATION
  Report Type: Spontaneous
  Country: US (occurrence: US)
  Receive Date: 20220413
  Receipt Date: 20230515
  Transmission Date: 20230721
  Serious: No
  Sender: FDA-Public Use
  Company Number: US-UCBSA-2022021419

PATIENT

DRUGS (2)
  1. NEUPRO [Suspect]
     Active Substance: ROTIGOTINE
     Indication: Product used for unknown indication
     Dosage: 4 MG
  2. NEUPRO [Suspect]
     Active Substance: ROTIGOTINE
     Dosage: 4 MG

REACTIONS (2)
  - Product adhesion issue [Unknown]
  - Product complaint [Unknown]
